FAERS Safety Report 4700352-9 (Version None)
Quarter: 2005Q2

REPORT INFORMATION
  Report Type: 
  Country: None (occurrence: None)
  Receive Date: 20050624
  Receipt Date: 20040820
  Transmission Date: 20051028
  Serious: Yes (Death)
  Sender: FDA-Public Use
  Company Number: 364408

PATIENT
  Age: 45 Year
  Sex: Male
  Weight: 80.7 kg

DRUGS (5)
  1. XELODA [Suspect]
     Indication: NEOPLASM MALIGNANT
     Dosage: ORAL
     Route: 048
     Dates: start: 20040115
  2. PROTONIX [Concomitant]
  3. LASIX [Concomitant]
  4. OXYCONTIN [Concomitant]
  5. LEVAQUIN [Concomitant]

REACTIONS (2)
  - METASTASES TO LIVER [None]
  - PANCREATIC CARCINOMA [None]
